FAERS Safety Report 14542873 (Version 1)
Quarter: 2018Q1

REPORT INFORMATION
  Report Type: Spontaneous
  Country: US (occurrence: US)
  Receive Date: 20180216
  Receipt Date: 20180216
  Transmission Date: 20180509
  Serious: Yes (Other)
  Sender: FDA-Public Use
  Company Number: US-OTSUKA-DJ201402047

PATIENT
  Sex: Male

DRUGS (2)
  1. ABILIFY [Suspect]
     Active Substance: ARIPIPRAZOLE
     Indication: PRODUCT USED FOR UNKNOWN INDICATION
     Dosage: UNK
     Route: 065
  2. RISPERDAL [Suspect]
     Active Substance: RISPERIDONE
     Indication: PRODUCT USED FOR UNKNOWN INDICATION
     Dosage: 16-MAY-2013
     Route: 065
     Dates: start: 20110902

REACTIONS (4)
  - Mental status changes [Unknown]
  - Feminisation acquired [Unknown]
  - Reproductive tract disorder [Unknown]
  - Neoplasm [Unknown]

NARRATIVE: CASE EVENT DATE: 201301
